FAERS Safety Report 5341661-2 (Version None)
Quarter: 2007Q2

REPORT INFORMATION
  Report Type: 
  Country: None (occurrence: None)
  Receive Date: 20070530
  Receipt Date: 20070518
  Transmission Date: 20071010
  Serious: Yes (Other)
  Sender: FDA-Public Use
  Company Number: 02100-JPN-07-0178

PATIENT
  Age: 75 Year
  Sex: Female

DRUGS (9)
  1. CILOSTAZOL [Suspect]
     Indication: CEREBRAL INFARCTION
     Dosage: 200 MG, ORAL
     Route: 048
     Dates: start: 20070313, end: 20070328
  2. ALLOPURINOL [Concomitant]
  3. ALACEPRIL [Concomitant]
  4. ISOSORBIDE DINITRATE [Concomitant]
  5. INDAPAMIDE [Concomitant]
  6. AMLOPINE BESILATE [Concomitant]
  7. ASPIRIN [Concomitant]
  8. BISOPROLOL FUMARATE [Concomitant]
  9. CALCIUM POLYSTYRENE SULFONATE [Concomitant]

REACTIONS (4)
  - ANOREXIA [None]
  - FEELING ABNORMAL [None]
  - NAUSEA [None]
  - RENAL FAILURE ACUTE [None]
